FAERS Safety Report 15732899 (Version 1)
Quarter: 2018Q4

REPORT INFORMATION
  Report Type: Report from Study
  Country: None (occurrence: US)
  Receive Date: 20181217
  Receipt Date: 20181217
  Transmission Date: 20190205
  Serious: Yes (Hospitalization, Other)
  Sender: FDA-Public Use
  Company Number: US-ABBVIE-18K-163-2582249-00

PATIENT
  Sex: Female
  Weight: 65.83 kg

DRUGS (2)
  1. HUMIRA [Suspect]
     Active Substance: ADALIMUMAB
     Route: 058
     Dates: start: 201705
  2. HUMIRA [Suspect]
     Active Substance: ADALIMUMAB
     Indication: CROHN^S DISEASE
     Route: 058
     Dates: start: 2013, end: 201703

REACTIONS (6)
  - Intestinal obstruction [Recovered/Resolved]
  - Hospitalisation [Unknown]
  - Hypophagia [Recovered/Resolved]
  - Fluid intake reduced [Recovered/Resolved]
  - Dysstasia [Recovered/Resolved]
  - Procedural pain [Recovered/Resolved]

NARRATIVE: CASE EVENT DATE: 2017
